FAERS Safety Report 10556775 (Version 2)
Quarter: 2014Q4

REPORT INFORMATION
  Report Type: Spontaneous
  Country: US (occurrence: US)
  Receive Date: 20141031
  Receipt Date: 20141231
  Transmission Date: 20150529
  Serious: Yes (Hospitalization)
  Sender: FDA-Public Use
  Company Number: US-JNJFOC-20141017589

PATIENT
  Age: 36 Year
  Sex: Male

DRUGS (2)
  1. 6-MP [Concomitant]
     Active Substance: MERCAPTOPURINE
     Route: 065
  2. REMICADE [Suspect]
     Active Substance: INFLIXIMAB
     Indication: CROHN^S DISEASE
     Route: 042
     Dates: end: 20140905

REACTIONS (3)
  - Hypertension [Unknown]
  - Histoplasmosis [Unknown]
  - Pneumothorax [Unknown]

NARRATIVE: CASE EVENT DATE: 201410
